FAERS Safety Report 9942422 (Version 3)
Quarter: 2014Q2

REPORT INFORMATION
  Report Type: Spontaneous
  Country: JP (occurrence: JP)
  Receive Date: 20140303
  Receipt Date: 20140408
  Transmission Date: 20141212
  Serious: Yes (Other)
  Sender: FDA-Public Use
  Company Number: PHHY2014JP025141

PATIENT
  Sex: Female

DRUGS (2)
  1. GLIVEC [Suspect]
     Indication: GASTROINTESTINAL STROMAL TUMOUR
     Dosage: UNK
     Route: 048
     Dates: start: 2006, end: 2013
  2. GLIVEC [Suspect]
     Dosage: UNK
     Dates: start: 2013

REACTIONS (4)
  - Bile duct stone [Unknown]
  - Abdominal pain upper [Unknown]
  - Blood bilirubin increased [Unknown]
  - Haemobilia [Unknown]
